FAERS Safety Report 6860316-6 (Version None)
Quarter: 2010Q3

REPORT INFORMATION
  Report Type: 
  Country: None (occurrence: None)
  Receive Date: 20100719
  Receipt Date: 20100719
  Transmission Date: 20110219
  Serious: Yes (Disabling, Other)
  Sender: FDA-Public Use
  Company Number: None

PATIENT
  Age: 63 Year
  Sex: Male

DRUGS (2)
  1. CRESTOR [Suspect]
     Dosage: 10 MG DAILY
     Dates: start: 20090828
  2. CRESTOR [Suspect]
     Dosage: 10 MG DAILY
     Dates: start: 20100501

REACTIONS (5)
  - AMNESIA [None]
  - BACK PAIN [None]
  - DYSSTASIA [None]
  - ECONOMIC PROBLEM [None]
  - HYPOTONIA [None]
